FAERS Safety Report 8306843-6 (Version None)
Quarter: 2012Q2

REPORT INFORMATION
  Report Type: 
  Country: None (occurrence: None)
  Receive Date: 20120424
  Receipt Date: 20120420
  Transmission Date: 20120825
  Serious: Yes (Other)
  Sender: FDA-Public Use
  Company Number: US-PFIZER INC-2012098487

PATIENT
  Sex: Female
  Weight: 104.3 kg

DRUGS (6)
  1. CELEBREX [Suspect]
     Indication: BACK DISORDER
     Dosage: 200 MG, 2X/DAY
     Route: 048
  2. NAPROXEN (ALEVE) [Concomitant]
     Indication: INTERVERTEBRAL DISC DEGENERATION
  3. CELEBREX [Suspect]
     Indication: PAIN
  4. NAPROXEN (ALEVE) [Concomitant]
     Indication: BACK DISORDER
     Dosage: UNK
  5. CELEBREX [Suspect]
     Indication: JOINT INJURY
  6. CELEBREX [Suspect]
     Indication: INTERVERTEBRAL DISC DEGENERATION

REACTIONS (1)
  - HYPERTENSION [None]
